FAERS Safety Report 24850258 (Version 2)
Quarter: 2025Q1

REPORT INFORMATION
  Report Type: Report from Study
  Country: ES (occurrence: ES)
  Receive Date: 20250116
  Receipt Date: 20250207
  Transmission Date: 20250409
  Serious: Yes (Death)
  Sender: PFIZER
  Company Number: ES-PFIZER INC-PV202500003279

PATIENT

DRUGS (4)
  1. OXALIPLATIN [Suspect]
     Active Substance: OXALIPLATIN
     Indication: Colorectal cancer metastatic
     Route: 042
  2. LEUCOVORIN CALCIUM [Suspect]
     Active Substance: LEUCOVORIN CALCIUM
     Indication: Colorectal cancer metastatic
     Route: 042
  3. FLUOROURACIL [Suspect]
     Active Substance: FLUOROURACIL
     Indication: Colorectal cancer metastatic
     Route: 040
  4. FLUOROURACIL [Suspect]
     Active Substance: FLUOROURACIL
     Route: 042

REACTIONS (1)
  - Mucosal inflammation [Fatal]
